FAERS Safety Report 9516855 (Version 1)
Quarter: 2013Q3

REPORT INFORMATION
  Report Type: Spontaneous
  Country: FR (occurrence: FR)
  Receive Date: 20130911
  Receipt Date: 20130911
  Transmission Date: 20140515
  Serious: Yes (Hospitalization, Other)
  Sender: FDA-Public Use
  Company Number: FR-BRISTOL-MYERS SQUIBB COMPANY-19230515

PATIENT
  Age: 89 Year
  Sex: Female

DRUGS (10)
  1. COUMADIN TABS 2 MG [Suspect]
     Dosage: SCORED TABLET 1 TAB DAILY ORALLY FROM UNSPECIFIED DATE TO 23-JUL-2013
     Route: 048
     Dates: end: 20130723
  2. AUGMENTIN [Interacting]
     Route: 042
     Dates: start: 20130721, end: 20130724
  3. DALACINE [Interacting]
     Route: 048
     Dates: start: 20130723, end: 20130726
  4. CLAMOXYL [Interacting]
     Route: 048
     Dates: start: 20130725
  5. BISOPROLOL [Concomitant]
  6. INEXIUM [Concomitant]
  7. LASILIX [Concomitant]
  8. MOVICOL [Concomitant]
  9. LEVOTHYROX [Concomitant]
  10. DIFFU-K [Concomitant]

REACTIONS (2)
  - International normalised ratio increased [Recovered/Resolved]
  - Drug interaction [Unknown]
